FAERS Safety Report 11568142 (Version 1)
Quarter: 2015Q3

REPORT INFORMATION
  Report Type: Spontaneous
  Country: US (occurrence: US)
  Receive Date: 20150929
  Receipt Date: 20150929
  Transmission Date: 20151125
  Serious: No
  Sender: FDA-Public Use
  Company Number: US-AMGEN-USASP2015099751

PATIENT
  Age: 38 Year
  Sex: Female
  Weight: 124.72 kg

DRUGS (5)
  1. NORCO [Concomitant]
     Active Substance: ACETAMINOPHEN\HYDROCODONE BITARTRATE
     Dosage: UNK
  2. BACLOFEN. [Concomitant]
     Active Substance: BACLOFEN
     Dosage: UNK
  3. ENBREL [Suspect]
     Active Substance: ETANERCEPT
     Indication: PSORIASIS
  4. PHENTERMINE HCL [Concomitant]
     Active Substance: PHENTERMINE HYDROCHLORIDE
     Dosage: UNK
  5. ENBREL [Suspect]
     Active Substance: ETANERCEPT
     Indication: PSORIATIC ARTHROPATHY
     Dosage: 50 MG TWO TIME A WEEK
     Route: 058
     Dates: start: 20150720, end: 201509

REACTIONS (6)
  - Injection site erythema [Recovered/Resolved]
  - Pain in extremity [Recovered/Resolved]
  - Injection site urticaria [Recovered/Resolved]
  - Injection site bruising [Recovered/Resolved]
  - Peripheral swelling [Recovered/Resolved]
  - Injection site reaction [Recovered/Resolved]

NARRATIVE: CASE EVENT DATE: 201509
